FAERS Safety Report 8974061 (Version 5)
Quarter: 2013Q1

REPORT INFORMATION
  Report Type: Spontaneous
  Country: IT (occurrence: IT)
  Receive Date: 20121218
  Receipt Date: 20130305
  Transmission Date: 20140127
  Serious: Yes (Life-Threatening, Other)
  Sender: FDA-Public Use
  Company Number: IT-ABBOTT-12P-083-1022424-00

PATIENT
  Age: 91 Year
  Sex: Male

DRUGS (5)
  1. AKINETON [Suspect]
     Indication: DRUG ADMINISTRATION ERROR
     Dosage: TOTAL
     Route: 048
     Dates: start: 20120913, end: 20120913
  2. SEREUPIN [Suspect]
     Indication: DRUG ADMINISTRATION ERROR
     Dosage: TOTAL
     Route: 048
     Dates: start: 20120913, end: 20120913
  3. LEPONEX [Suspect]
     Indication: DRUG ADMINISTRATION ERROR
     Dosage: TOTAL
     Route: 048
     Dates: start: 20120913, end: 20120913
  4. PROZIN [Suspect]
     Indication: DRUG ADMINISTRATION ERROR
     Dosage: TOTAL
     Route: 048
     Dates: start: 20120913, end: 20120913
  5. SERENASE [Suspect]
     Indication: DRUG ADMINISTRATION ERROR
     Dosage: TOTAL
     Route: 048
     Dates: start: 20120913, end: 20120913

REACTIONS (4)
  - Cardio-respiratory arrest [Not Recovered/Not Resolved]
  - Bradycardia [Not Recovered/Not Resolved]
  - Sopor [Not Recovered/Not Resolved]
  - Wrong drug administered [Unknown]
